FAERS Safety Report 8019666 (Version 8)
Quarter: 2012Q4

REPORT INFORMATION
  Report Type: 
  Country: US (occurrence: US)
  Receive Date: 20110704
  Receipt Date: 20121114
  Transmission Date: 20130627
  Serious: Yes (Other)
  Sender: FDA-Public Use
  Company Number: PHHY2011US56744

PATIENT
  Age: 50 None
  Sex: Female
  Weight: 56.24 kg

DRUGS (2)
  1. GILENYA [Suspect]
     Indication: RELAPSING-REMITTING MULTIPLE SCLEROSIS
     Dosage: 0.5 mg, QD
     Route: 048
     Dates: start: 20110120
  2. ESTRADIOL [Concomitant]

REACTIONS (11)
  - Uhthoff^s phenomenon [Unknown]
  - Fatigue [Unknown]
  - Muscular weakness [Unknown]
  - Temperature intolerance [Unknown]
  - Hot flush [Unknown]
  - Inflammation [Not Recovered/Not Resolved]
  - Breast cyst [Unknown]
  - Concussion [Unknown]
  - Incontinence [Unknown]
  - Fall [Unknown]
  - Urinary tract infection [Recovered/Resolved]
